FAERS Safety Report 16330068 (Version 3)
Quarter: 2019Q2

REPORT INFORMATION
  Report Type: Report from Study
  Country: PE (occurrence: PE)
  Receive Date: 20190520
  Receipt Date: 20190618
  Transmission Date: 20190711
  Serious: Yes (Hospitalization)
  Sender: FDA-Public Use
  Company Number: PE-SA-2019SA132149

PATIENT
  Age: 83 Year
  Sex: Male

DRUGS (5)
  1. METHYLDOPA. [Concomitant]
     Active Substance: METHYLDOPA
     Indication: HYPERTENSION
     Dosage: 70 MG, QD
     Route: 048
     Dates: start: 2016
  2. HYDROCHLOROTHIAZIDE/IRBESARTAN [Suspect]
     Active Substance: HYDROCHLOROTHIAZIDE\IRBESARTAN
     Indication: HYPERTENSION
     Dosage: 300MG/25MG, QD
     Route: 048
     Dates: start: 2017
  3. CLOPIDROL [Concomitant]
     Indication: ARRHYTHMIA
     Dosage: 75 MG, QD
     Route: 048
     Dates: start: 2016
  4. ATORVASTATIN [Concomitant]
     Active Substance: ATORVASTATIN
     Indication: BLOOD CHOLESTEROL INCREASED
     Dosage: 10 MG, QD
     Route: 048
     Dates: start: 2016
  5. DIGOXIN. [Concomitant]
     Active Substance: DIGOXIN
     Indication: ARRHYTHMIA
     Dosage: ? UNIT DAILY
     Route: 048
     Dates: start: 2016

REACTIONS (2)
  - Kidney infection [Recovered/Resolved]
  - Prostatic operation [Unknown]

NARRATIVE: CASE EVENT DATE: 2018
